FAERS Safety Report 8087125-7 (Version None)
Quarter: 2012Q1

REPORT INFORMATION
  Report Type: 
  Country: None (occurrence: None)
  Receive Date: 20120128
  Receipt Date: 20110510
  Transmission Date: 20120608
  Serious: No
  Sender: FDA-Public Use
  Company Number: US-ABBOTT-11P-163-0725335-00

PATIENT
  Sex: Female
  Weight: 99.88 kg

DRUGS (8)
  1. ZETIA [Concomitant]
     Indication: BLOOD CHOLESTEROL INCREASED
     Route: 048
  2. ASPIRIN [Concomitant]
     Indication: PROPHYLAXIS
     Route: 048
  3. HUMIRA [Suspect]
     Indication: CROHN'S DISEASE
     Route: 058
     Dates: start: 20101101, end: 20110301
  4. VITAMIN D [Concomitant]
     Indication: VITAMIN SUPPLEMENTATION
     Route: 048
  5. PREDNISONE TAB [Concomitant]
     Indication: CROHN'S DISEASE
     Route: 048
  6. IMURAN [Concomitant]
     Indication: AUTOIMMUNE DISORDER
  7. CYMBALTA [Concomitant]
     Indication: FIBROMYALGIA
     Route: 048
  8. NAPROSYN [Concomitant]
     Indication: FIBROMYALGIA
     Route: 048

REACTIONS (1)
  - BLISTER [None]
